FAERS Safety Report 5692468-8 (Version None)
Quarter: 2008Q1

REPORT INFORMATION
  Report Type: 
  Country: None (occurrence: None)
  Receive Date: 20080331
  Receipt Date: 20080121
  Transmission Date: 20080703
  Serious: Yes (Other)
  Sender: FDA-Public Use
  Company Number: ENC200800042

PATIENT
  Age: 58 Year
  Sex: Female

DRUGS (1)
  1. ARGATROBAN [Suspect]
     Indication: HEPARIN-INDUCED THROMBOCYTOPENIA
     Dosage: 50 MG, QD, INTRAVENOUS
     Route: 042
     Dates: start: 20080101, end: 20080102

REACTIONS (9)
  - DEAFNESS [None]
  - DEMENTIA [None]
  - DERMATITIS HERPETIFORMIS [None]
  - DYSPHAGIA [None]
  - HEMICEPHALALGIA [None]
  - MUSCULAR WEAKNESS [None]
  - PUPILS UNEQUAL [None]
  - SPEECH DISORDER [None]
  - STUPOR [None]
